FAERS Safety Report 6274770-4 (Version None)
Quarter: 2009Q3

REPORT INFORMATION
  Report Type: 
  Country: None (occurrence: None)
  Receive Date: 20090721
  Receipt Date: 20080410
  Transmission Date: 20100115
  Serious: Yes (Other)
  Sender: FDA-Public Use
  Company Number: US-ASTRAZENECA-2007UW25214

PATIENT
  Age: 840 Month
  Sex: Female
  Weight: 99 kg

DRUGS (10)
  1. SEROQUEL [Suspect]
     Indication: DEPRESSION
     Dosage: 50-150 MG
     Route: 048
     Dates: start: 20040301, end: 20060601
  2. SEROQUEL [Suspect]
     Indication: ANXIETY
     Dosage: 50-150 MG
     Route: 048
     Dates: start: 20040301, end: 20060601
  3. SEROQUEL [Suspect]
     Indication: SLEEP DISORDER
     Dosage: 50-150 MG
     Route: 048
     Dates: start: 20040301, end: 20060601
  4. SEROQUEL [Suspect]
     Dosage: 25-50 MG
     Route: 048
     Dates: start: 20041117
  5. SEROQUEL [Suspect]
     Dosage: 25-50 MG
     Route: 048
     Dates: start: 20041117
  6. SEROQUEL [Suspect]
     Dosage: 25-50 MG
     Route: 048
     Dates: start: 20041117
  7. ISOSORBIDE MONONITRATE [Concomitant]
     Dates: start: 20060725
  8. ZESTRIL [Concomitant]
     Dates: start: 20060725
  9. SYNTHROID [Concomitant]
     Route: 048
     Dates: start: 20060725
  10. ZOLOFT [Concomitant]
     Dosage: 100-200 MG
     Route: 048
     Dates: start: 19990330

REACTIONS (2)
  - DIABETES MELLITUS [None]
  - DIABETIC NEUROPATHY [None]
